FAERS Safety Report 7564441-6 (Version None)
Quarter: 2011Q2

REPORT INFORMATION
  Report Type: 
  Country: None (occurrence: None)
  Receive Date: 20110622
  Receipt Date: 20110610
  Transmission Date: 20111010
  Serious: Yes (Other)
  Sender: FDA-Public Use
  Company Number: PHHY2011US51411

PATIENT
  Sex: Female
  Weight: 100.92 kg

DRUGS (6)
  1. EXJADE [Suspect]
     Indication: MYELODYSPLASTIC SYNDROME
     Dosage: UNK
  2. DIOVAN [Concomitant]
     Dosage: UNK
     Route: 048
  3. SYNTHROID [Concomitant]
     Dosage: UNK
  4. OMEPRAZOLE [Concomitant]
     Dosage: UNK
  5. PRILOSEC [Concomitant]
     Route: 048
  6. XANAX [Concomitant]
     Dosage: UNK
     Route: 048

REACTIONS (6)
  - FEELING ABNORMAL [None]
  - OEDEMA PERIPHERAL [None]
  - DIARRHOEA [None]
  - ERYTHEMA [None]
  - NASOPHARYNGITIS [None]
  - TINNITUS [None]
